FAERS Safety Report 9560228 (Version 2)
Quarter: 2013Q3

REPORT INFORMATION
  Report Type: Spontaneous
  Country: AU (occurrence: AU)
  Receive Date: 20130927
  Receipt Date: 20130927
  Transmission Date: 20140515
  Serious: Yes (Death, Hospitalization)
  Sender: FDA-Public Use
  Company Number: AU-ELI_LILLY_AND_COMPANY-AU201303000597

PATIENT
  Age: 81 Year
  Sex: Female
  Weight: 79 kg

DRUGS (8)
  1. CYMBALTA [Suspect]
     Indication: DEPRESSION
     Dosage: 60 MG, QD
     Route: 048
     Dates: start: 20120524
  2. CYMBALTA [Suspect]
     Indication: ANXIETY
  3. ALODORM [Concomitant]
  4. ASTAX [Concomitant]
  5. CO-DIOVAN [Concomitant]
  6. THYROXINE [Concomitant]
  7. EZETROL [Concomitant]
  8. OSTELIN                            /00107901/ [Concomitant]

REACTIONS (2)
  - Acute myeloid leukaemia [Fatal]
  - White blood cell count decreased [Not Recovered/Not Resolved]
